FAERS Safety Report 5668704-0 (Version None)
Quarter: 2008Q1

REPORT INFORMATION
  Report Type: 
  Country: None (occurrence: None)
  Receive Date: 20080317
  Receipt Date: 20080304
  Transmission Date: 20080703
  Serious: Yes (Hospitalization)
  Sender: FDA-Public Use
  Company Number: US-RANBAXY-2008RR-13488

PATIENT

DRUGS (7)
  1. FLUOXETINE [Suspect]
     Indication: FATIGUE
     Dosage: 40 MG, QD
  2. INTERFERON BETA [Concomitant]
     Indication: MULTIPLE SCLEROSIS
     Dosage: UNK
     Route: 042
  3. MODAFINIL [Concomitant]
     Indication: FATIGUE
     Dosage: 200 MG, UNK
  4. AMANTADINE HCL [Concomitant]
     Indication: FATIGUE
     Dosage: 200 MG, UNK
  5. OXYBUTYNIN CHLORIDE [Concomitant]
     Indication: AUTOMATIC BLADDER
     Dosage: 10 MG, TID
  6. LEVOTHYROXINE SODIUM [Concomitant]
     Indication: HYPOTHYROIDISM
     Dosage: 88 UG, QD
  7. BACLOFEN [Concomitant]

REACTIONS (2)
  - DELIRIUM [None]
  - DRUG WITHDRAWAL SYNDROME [None]
